FAERS Safety Report 10409152 (Version 1)
Quarter: 2014Q3

REPORT INFORMATION
  Report Type: Report from Study
  Country: BR (occurrence: BR)
  Receive Date: 20140826
  Receipt Date: 20140826
  Transmission Date: 20150326
  Serious: Yes (Other)
  Sender: FDA-Public Use
  Company Number: PHHY2014BR106024

PATIENT
  Age: 59 Year
  Sex: Male
  Weight: 87 kg

DRUGS (12)
  1. NPH INSULIN [Suspect]
     Active Substance: INSULIN BEEF
     Dosage: 20 U, TID (MORNING, LUNCH AND DINNER)
  2. ADDERA D3 [Concomitant]
     Active Substance: CHOLECALCIFEROL
     Dosage: 1 DF, QW
     Dates: start: 201311
  3. NORVASC [Concomitant]
     Active Substance: AMLODIPINE BESYLATE
     Dosage: 2 DF (5MG), DAILY
     Dates: start: 201311
  4. SERTRALINE [Concomitant]
     Active Substance: SERTRALINE HYDROCHLORIDE
     Dosage: 1 DF, QD MORNING
     Dates: start: 201311
  5. DIOVAN HCT [Suspect]
     Active Substance: HYDROCHLOROTHIAZIDE\VALSARTAN
     Indication: OFF LABEL USE
  6. DIOVAN HCT [Suspect]
     Active Substance: HYDROCHLOROTHIAZIDE\VALSARTAN
     Indication: NERVOUSNESS
     Dosage: 320 MG, UNK
     Dates: start: 201311
  7. ATORVASTATIN [Concomitant]
     Active Substance: ATORVASTATIN
     Dosage: 40 MG, QD NIGHT
     Dates: start: 201311
  8. RIVOTRIL [Concomitant]
     Active Substance: CLONAZEPAM
     Dosage: 1 DF, DAILY
     Dates: start: 201311
  9. INSULIN REGULAR HM [Suspect]
     Active Substance: INSULIN NOS
     Indication: DIABETES MELLITUS
     Dosage: 4 U, TID (MORNING, LUNCH, DINNER)
  10. NPH INSULIN [Suspect]
     Active Substance: INSULIN BEEF
     Indication: DIABETES MELLITUS
     Dosage: 46 U, UNK
  11. ATENSINA [Concomitant]
     Active Substance: CLONIDINE
     Dosage: 3 DF (100 MG), DAILY
     Dates: start: 201311
  12. LASIX [Concomitant]
     Active Substance: FUROSEMIDE
     Dosage: 40 MG, DAILY
     Dates: start: 201311

REACTIONS (2)
  - Cerebrovascular accident [Recovering/Resolving]
  - Blood pressure increased [Recovering/Resolving]

NARRATIVE: CASE EVENT DATE: 201407
